FAERS Safety Report 13374365 (Version 9)
Quarter: 2019Q1

REPORT INFORMATION
  Report Type: Spontaneous
  Country: JP (occurrence: JP)
  Receive Date: 20170327
  Receipt Date: 20190221
  Transmission Date: 20190417
  Serious: Yes (Death, Life-Threatening, Hospitalization, Other)
  Sender: FDA-Public Use
  Company Number: JP-009507513-1703JPN002118J

PATIENT
  Age: 81 Year
  Sex: Female
  Weight: 34 kg

DRUGS (10)
  1. ADONA [Concomitant]
     Indication: HAEMOPTYSIS
     Dosage: 90 MG, UNK
     Route: 048
     Dates: start: 20170301, end: 20170526
  2. NAIXAN [Concomitant]
     Active Substance: NAPROXEN SODIUM
     Indication: TUMOUR ASSOCIATED FEVER
     Dosage: 300 MG, UNK
     Route: 048
     Dates: start: 20161214, end: 20170526
  3. CALONAL [Concomitant]
     Active Substance: ACETAMINOPHEN
     Indication: PYREXIA
     Dosage: 400 MG, UNK
     Route: 048
     Dates: start: 20170308, end: 20170312
  4. CEPHARANTHINE [Concomitant]
     Active Substance: CEPHARANTHINE
     Indication: IMMUNOGLOBULINS DECREASED
     Dosage: 3 MG, UNK
     Route: 048
     Dates: start: 20170215
  5. LOXONIN [Concomitant]
     Active Substance: LOXOPROFEN SODIUM
     Indication: TUMOUR ASSOCIATED FEVER
     Dosage: 60 MG, UNK
     Route: 048
     Dates: start: 20170220, end: 20170526
  6. KEYTRUDA [Suspect]
     Active Substance: PEMBROLIZUMAB
     Indication: SQUAMOUS CELL CARCINOMA OF LUNG
     Dosage: 200 MG, Q3W
     Route: 041
     Dates: start: 20170310, end: 20170310
  7. REBAMIPIDE [Concomitant]
     Active Substance: REBAMIPIDE
     Indication: TUMOUR ASSOCIATED FEVER
     Dosage: 100 MG, UNK
     Route: 048
     Dates: start: 20170220, end: 20170526
  8. ABRAXANE [Suspect]
     Active Substance: PACLITAXEL
     Indication: LUNG NEOPLASM MALIGNANT
     Dosage: 100 MG, UNK
     Route: 041
     Dates: start: 20170125, end: 20170216
  9. CLARITHROMYCIN. [Concomitant]
     Active Substance: CLARITHROMYCIN
     Indication: PNEUMONIA
     Dosage: 400 MG, UNK
     Route: 048
     Dates: start: 20170307, end: 20170312
  10. SPIOLTO RESPIMAT [Concomitant]
     Active Substance: OLODATEROL HYDROCHLORIDE\TIOTROPIUM BROMIDE MONOHYDRATE
     Indication: CHRONIC OBSTRUCTIVE PULMONARY DISEASE
     Dosage: 2 DF, UNK
     Route: 055
     Dates: start: 20170308, end: 20170526

REACTIONS (2)
  - Plasma cell myeloma [Fatal]
  - Interstitial lung disease [Recovered/Resolved]

NARRATIVE: CASE EVENT DATE: 20170313
